FAERS Safety Report 8512249-7 (Version None)
Quarter: 2012Q3

REPORT INFORMATION
  Report Type: 
  Country: None (occurrence: None)
  Receive Date: 20120716
  Receipt Date: 20120705
  Transmission Date: 20120928
  Serious: Yes (Other)
  Sender: FDA-Public Use
  Company Number: JP-VERTEX PHARMACEUTICALS INC.-AE-2012-010087

PATIENT
  Age: 29 Year
  Sex: Male

DRUGS (5)
  1. REBETOL [Concomitant]
     Indication: HEPATITIS C
     Route: 048
     Dates: start: 20120515, end: 20120528
  2. PEG-INTRON [Concomitant]
     Indication: HEPATITIS C
     Route: 058
     Dates: start: 20120515, end: 20120703
  3. REBETOL [Concomitant]
     Route: 048
     Dates: start: 20120605, end: 20120703
  4. REBETOL [Concomitant]
     Route: 048
     Dates: start: 20120529, end: 20120604
  5. TELAVIC (TELAPREVIR) [Suspect]
     Indication: HEPATITIS C
     Route: 048
     Dates: start: 20120515, end: 20120703

REACTIONS (6)
  - RASH [None]
  - BLOOD BILIRUBIN INCREASED [None]
  - TRANSAMINASES INCREASED [None]
  - PNEUMONIA [None]
  - PRURITUS [None]
  - BLOOD URIC ACID INCREASED [None]
